FAERS Safety Report 5284619-4 (Version None)
Quarter: 2007Q2

REPORT INFORMATION
  Report Type: 
  Country: None (occurrence: None)
  Receive Date: 20070403
  Receipt Date: 20070323
  Transmission Date: 20071010
  Serious: Yes (Life-Threatening, Hospitalization)
  Sender: FDA-Public Use
  Company Number: FR-ROCHE-469732

PATIENT
  Age: 34 Year
  Sex: Male

DRUGS (30)
  1. ZENAPAX [Suspect]
     Route: 042
     Dates: start: 20050907, end: 20050907
  2. ZENAPAX [Suspect]
     Route: 042
     Dates: start: 20050914, end: 20050914
  3. MYCOPHENOLATE MOFETIL [Suspect]
     Route: 042
     Dates: start: 20050907, end: 20050907
  4. MYCOPHENOLATE MOFETIL [Suspect]
     Route: 042
     Dates: start: 20050908, end: 20050911
  5. MYCOPHENOLATE MOFETIL [Suspect]
     Route: 048
     Dates: start: 20050912, end: 20050929
  6. TACROLIMUS [Suspect]
     Dosage: DOSE ADJUSTED TO REACH PRE-DEFINED TARGET LEVELS
     Route: 048
     Dates: start: 20050912, end: 20050929
  7. METHYLPREDNISOLONE 16MG TAB [Suspect]
     Dosage: DOSE TAPERED ACCORDING TO LOCAL PROTOCOL
     Route: 065
     Dates: start: 20050907, end: 20050914
  8. PREDNISONE [Suspect]
     Dosage: DOSE TAPERED ACCORDING TO LOCAL PROTOCOL
     Route: 065
     Dates: start: 20050915, end: 20050929
  9. PIPERILLINE [Concomitant]
     Indication: PROPHYLAXIS
     Dates: start: 20050907, end: 20050909
  10. BACTRIM [Concomitant]
     Indication: PROPHYLAXIS
     Dates: start: 20050908, end: 20050928
  11. ZOVIRAX [Concomitant]
     Dosage: DRUG STOPPED ON 18 SEPT 2005 AND RESUMED ON 30 SEPT 2005
     Dates: start: 20050907, end: 20051010
  12. VALACYCLOVIR HCL [Concomitant]
     Dosage: DRUG STOPPED ON 29 SEPT 2005 AND RESUMED ON 10 OCT 2005
     Dates: start: 20050919, end: 20051020
  13. INIPOMP [Concomitant]
     Indication: PROPHYLAXIS
     Dosage: DRUG STOPPED ON 25 OCT 2005 AND RESUMED ON 27 OCT 2005
     Dates: start: 20050907, end: 20051029
  14. HEPARIN [Concomitant]
     Indication: THROMBOSIS PROPHYLAXIS
     Dates: start: 20050909, end: 20051012
  15. FRAXODI [Concomitant]
     Indication: THROMBOSIS PROPHYLAXIS
     Dates: start: 20051013
  16. SUFENTA [Concomitant]
     Indication: SEDATION
     Dosage: DRUG STOPPED ON 14 SEPT 2005 AND RESUMED ON 29 SEPT 2005
     Dates: start: 20050914, end: 20051001
  17. BURINEX [Concomitant]
     Dates: start: 20050930, end: 20051005
  18. MORPHINE [Concomitant]
     Dosage: DRUG STOPPED ON 15 SEP 2005 AND RESUMED FOR ABDOMINALPAIN ON 2 OCT 2005
     Dates: start: 20050911, end: 20051002
  19. IMODIUM [Concomitant]
     Indication: DIARRHOEA
     Dosage: DRUG STOPPED ON 28 SEPT 2005 AND RESUMED ON 6 OCT 2005. INDICATION: DIARRHOEA (AMYLOID NEUROPATHY)
     Dates: start: 20050919, end: 20051026
  20. ACETYLCYSTEINE [Concomitant]
     Dosage: DRUG STOPPED ON 17 SEP 2005 AND RESUMED ON 7 OCT 2005
     Dates: start: 20050913, end: 20051010
  21. HYPNOVEL [Concomitant]
     Indication: SEDATION
     Dates: start: 20050929, end: 20051001
  22. SUCRALFATE [Concomitant]
     Indication: PROPHYLAXIS
     Dates: start: 20051005
  23. OFLOCET [Concomitant]
     Indication: PROPHYLAXIS
     Dates: start: 20050928, end: 20050928
  24. ATARAX [Concomitant]
     Indication: ANXIETY
     Dates: start: 20051007, end: 20051011
  25. PERFALGAN [Concomitant]
     Dates: start: 20051015, end: 20051015
  26. ZYVOX [Concomitant]
     Indication: PROPHYLAXIS
     Dates: start: 20051013, end: 20051014
  27. INSULINE [Concomitant]
     Indication: HYPERGLYCAEMIA
     Dates: start: 20050930, end: 20051006
  28. ACLOTINE [Concomitant]
     Indication: HEPATIC ARTERY THROMBOSIS
     Dates: start: 20050915, end: 20050915
  29. CIPROFLOXACIN HCL [Concomitant]
     Indication: PROPHYLAXIS
     Dates: start: 20050929, end: 20051019
  30. PYOSTACINE [Concomitant]
     Indication: PROPHYLAXIS
     Dates: start: 20051015, end: 20051020

REACTIONS (1)
  - SEPTIC SHOCK [None]
